FAERS Safety Report 23184702 (Version 1)
Quarter: 2023Q4

REPORT INFORMATION
  Report Type: Spontaneous
  Country: US (occurrence: US)
  Receive Date: 20231115
  Receipt Date: 20231115
  Transmission Date: 20240109
  Serious: No
  Sender: FDA-Public Use
  Company Number: US-002147023-NVSC2023US243104

PATIENT
  Sex: Male

DRUGS (1)
  1. NETSPOT [Suspect]
     Active Substance: DOTATATE GALLIUM GA-68
     Indication: Neuroendocrine tumour
     Dosage: 5.4 MCI (5.6MCI IN 3.6ML, SINGLE VIAL)
     Route: 065
     Dates: start: 20230811

REACTIONS (1)
  - Wrong product administered [Unknown]
